FAERS Safety Report 9310930 (Version 1)
Quarter: 2013Q2

REPORT INFORMATION
  Report Type: Spontaneous
  Country: US (occurrence: None)
  Receive Date: 20130523
  Receipt Date: 20130523
  Transmission Date: 20140414
  Serious: Yes (Hospitalization)
  Sender: FDA-Public Use
  Company Number: None

PATIENT
  Age: 92 Year
  Sex: Female
  Weight: 63.3 kg

DRUGS (1)
  1. CARBOPLATIN [Suspect]

REACTIONS (4)
  - Fall [None]
  - Joint injury [None]
  - Limb injury [None]
  - Head injury [None]
